FAERS Safety Report 13916657 (Version 1)
Quarter: 2017Q3

REPORT INFORMATION
  Report Type: Other
  Country: US (occurrence: US)
  Receive Date: 20170829
  Receipt Date: 20170829
  Transmission Date: 20171127
  Serious: Yes (Hospitalization, Other)
  Sender: FDA-Public Use
  Company Number: US-ACORDA-ACO_136933_2017

PATIENT
  Age: 58 Year
  Sex: Female
  Weight: 82.99 kg

DRUGS (5)
  1. AMPYRA [Suspect]
     Active Substance: DALFAMPRIDINE
     Indication: MULTIPLE SCLEROSIS
     Dosage: 10 MG, Q 12 HRS
     Route: 048
  2. TIZANIDINE. [Suspect]
     Active Substance: TIZANIDINE
     Indication: PRODUCT USED FOR UNKNOWN INDICATION
     Dosage: 4 MG,(1 AND 1/2 TABLET) HS
     Route: 048
     Dates: start: 20170130, end: 20170530
  3. AMPYRA [Suspect]
     Active Substance: DALFAMPRIDINE
     Indication: GAIT DISTURBANCE
  4. TYSABRI [Suspect]
     Active Substance: NATALIZUMAB
     Indication: RELAPSING-REMITTING MULTIPLE SCLEROSIS
     Dosage: 300 MG, MONTHLY
     Route: 042
     Dates: start: 20080429
  5. KEPPRA [Concomitant]
     Active Substance: LEVETIRACETAM
     Indication: GAIT DISTURBANCE
     Dosage: UNK
     Route: 065

REACTIONS (38)
  - Cervical cord compression [Recovered/Resolved]
  - Dysarthria [Recovered/Resolved]
  - Skin ulcer [Unknown]
  - Gait disturbance [Unknown]
  - Blood glucose fluctuation [Unknown]
  - Cholelithiasis [Unknown]
  - Contusion [Unknown]
  - Hypertonia [Unknown]
  - Pain [Not Recovered/Not Resolved]
  - Dehydration [Recovered/Resolved]
  - Cellulitis [Unknown]
  - Surgery [Unknown]
  - Decreased vibratory sense [Unknown]
  - Balance disorder [Not Recovered/Not Resolved]
  - Fatigue [Unknown]
  - Fall [Recovered/Resolved]
  - Muscular weakness [Not Recovered/Not Resolved]
  - Paraesthesia [Unknown]
  - Multiple sclerosis relapse [Recovered/Resolved]
  - Glycosylated haemoglobin increased [Unknown]
  - Vitamin D deficiency [Unknown]
  - Cognitive disorder [Not Recovered/Not Resolved]
  - Memory impairment [Not Recovered/Not Resolved]
  - Wound [Unknown]
  - Catheterisation cardiac [Unknown]
  - Multiple sclerosis relapse [Unknown]
  - Hyperreflexia [Unknown]
  - Gait disturbance [Not Recovered/Not Resolved]
  - Multiple sclerosis [Recovered/Resolved]
  - Ataxia [Recovering/Resolving]
  - Chest X-ray abnormal [Unknown]
  - Intervertebral disc protrusion [Recovered/Resolved]
  - Spinal cord compression [Unknown]
  - Gangrene [Unknown]
  - Osteomyelitis [Unknown]
  - Arterial occlusive disease [Unknown]
  - Neuropathy peripheral [Unknown]
  - Wound infection [Unknown]

NARRATIVE: CASE EVENT DATE: 20161130
